FAERS Safety Report 13167845 (Version 1)
Quarter: 2017Q1

REPORT INFORMATION
  Report Type: Report from Study
  Country: SE (occurrence: SE)
  Receive Date: 20170131
  Receipt Date: 20170131
  Transmission Date: 20170428
  Serious: Yes (Life-Threatening)
  Sender: FDA-Public Use
  Company Number: SE-KADMON PHARMACEUTICALS, LLC-KAD201701-000242

PATIENT
  Age: 67 Year
  Sex: Male
  Weight: 64.7 kg

DRUGS (6)
  1. CANDESARTAN [Concomitant]
     Active Substance: CANDESARTAN
  2. AMLODIPIN [Concomitant]
     Active Substance: AMLODIPINE BESYLATE
  3. CILAXORAL [Concomitant]
  4. HUMULIN; HUMAN MIXTARD [Concomitant]
     Dosage: INJECTION
  5. RIBAVIRIN 200 MG [Suspect]
     Active Substance: RIBAVIRIN
     Indication: HEPATITIS C
     Dosage: FILM COATED TABLET
     Route: 048
     Dates: start: 20160414, end: 20160928
  6. STILNOCT [Concomitant]
     Active Substance: ZOLPIDEM TARTRATE

REACTIONS (1)
  - Hepatocellular carcinoma [Not Recovered/Not Resolved]

NARRATIVE: CASE EVENT DATE: 20161227
